FAERS Safety Report 5742598-7 (Version None)
Quarter: 2008Q2

REPORT INFORMATION
  Report Type: 
  Country: None (occurrence: None)
  Receive Date: 20080515
  Receipt Date: 20080515
  Transmission Date: 20081010
  Serious: Yes (Disabling)
  Sender: FDA-Public Use
  Company Number: None

PATIENT
  Sex: Female
  Weight: 69.8539 kg

DRUGS (1)
  1. PREDNISONE TAB [Suspect]
     Indication: MYALGIA
     Dosage: VARIED DAILY PILL
     Dates: start: 20060101, end: 20070501

REACTIONS (3)
  - BLINDNESS UNILATERAL [None]
  - BLOOD PRESSURE INCREASED [None]
  - VISION BLURRED [None]
